FAERS Safety Report 8954599 (Version 1)
Quarter: 2012Q4

REPORT INFORMATION
  Report Type: Spontaneous
  Country: US (occurrence: None)
  Receive Date: 20121205
  Receipt Date: 20121205
  Transmission Date: 20130627
  Serious: Yes (Other)
  Sender: FDA-Public Use
  Company Number: None

PATIENT
  Age: 78 Year
  Sex: Male
  Weight: 77.3 kg

DRUGS (1)
  1. DYMISTA [Suspect]
     Indication: CHRONIC SINUSITIS
     Dosage: 2 sprays in each nostril  1/day Nose
     Dates: start: 20121016, end: 20121022

REACTIONS (3)
  - Urinary retention [None]
  - Enterococcal infection [None]
  - Device related infection [None]
